FAERS Safety Report 6380166-7 (Version None)
Quarter: 2009Q3

REPORT INFORMATION
  Report Type: 
  Country: None (occurrence: None)
  Receive Date: 20090929
  Receipt Date: 20090921
  Transmission Date: 20100115
  Serious: Yes (Hospitalization, Other)
  Sender: FDA-Public Use
  Company Number: US-JNJFOC-20090906377

PATIENT
  Sex: Male
  Weight: 108.86 kg

DRUGS (12)
  1. FENTANYL TRANSDERMAL SYSTEM [Suspect]
     Indication: BACK PAIN
     Route: 062
  2. FENTANYL TRANSDERMAL SYSTEM [Suspect]
     Indication: BACK PAIN
     Route: 062
  3. ALTACE [Concomitant]
     Indication: BLOOD PRESSURE
     Route: 048
  4. ATIVAN [Concomitant]
     Indication: DEPRESSION
     Route: 048
  5. REMERON [Concomitant]
     Indication: DEPRESSION
     Route: 048
  6. COREG [Concomitant]
     Indication: CARDIAC DISORDER
     Route: 048
  7. ATENOL [Concomitant]
     Indication: CARDIAC DISORDER
     Dosage: 50/25
     Route: 048
  8. FLOMAX [Concomitant]
     Indication: BENIGN PROSTATIC HYPERPLASIA
     Route: 048
  9. PLAVIX [Concomitant]
     Indication: CARDIAC DISORDER
     Route: 048
  10. COUMADIN [Concomitant]
     Indication: CARDIAC DISORDER
     Route: 048
  11. AMBIEN CR [Concomitant]
     Indication: SLEEP DISORDER
     Route: 048
  12. ZYPREXA [Concomitant]
     Indication: DEPRESSION
     Route: 048

REACTIONS (10)
  - APPLICATION SITE REACTION [None]
  - ASTHENIA [None]
  - BLOOD GLUCOSE INCREASED [None]
  - BLOOD POTASSIUM DECREASED [None]
  - CARDIAC FAILURE CONGESTIVE [None]
  - DRUG ADMINISTERED AT INAPPROPRIATE SITE [None]
  - DYSPNOEA [None]
  - GASTROOESOPHAGEAL REFLUX DISEASE [None]
  - PRODUCT QUALITY ISSUE [None]
  - RESTLESS LEGS SYNDROME [None]
